FAERS Safety Report 5302258-3 (Version None)
Quarter: 2007Q2

REPORT INFORMATION
  Report Type: 
  Country: None (occurrence: None)
  Receive Date: 20070419
  Receipt Date: 20060811
  Transmission Date: 20071010
  Serious: Yes (Hospitalization)
  Sender: FDA-Public Use
  Company Number: US-GLAXOSMITHKLINE-A0616315A

PATIENT
  Age: 44 Year
  Sex: Female

DRUGS (3)
  1. ESKALITH [Suspect]
     Indication: MANIA
     Dosage: 450MG THREE TIMES PER DAY
     Route: 048
     Dates: end: 20060201
  2. LITHIUM CARBONATE [Suspect]
  3. NO CONCURRENT MEDICATION [Concomitant]

REACTIONS (2)
  - DRUG INEFFECTIVE [None]
  - MANIA [None]
